FAERS Safety Report 9236075 (Version 1)
Quarter: 2013Q2

REPORT INFORMATION
  Report Type: Spontaneous
  Country: IT (occurrence: None)
  Receive Date: 20130405
  Receipt Date: 20130405
  Transmission Date: 20140414
  Serious: Yes (Other)
  Sender: FDA-Public Use
  Company Number: LIT-019-13-IT

PATIENT
  Age: 26 Year
  Sex: Male

DRUGS (1)
  1. IMMUNOGLOBULIN [Suspect]
     Indication: DELAYED HAEMOLYTIC TRANSFUSION REACTION
     Dosage: INTRAINTR
     Route: 042
     Dates: start: 201206, end: 201206

REACTIONS (7)
  - Drug ineffective for unapproved indication [None]
  - Haemoglobin decreased [None]
  - Blood lactate dehydrogenase increased [None]
  - Haemoglobinuria [None]
  - Bone pain [None]
  - Reticulocyte count increased [None]
  - Pain [None]
